FAERS Safety Report 12628695 (Version 1)
Quarter: 2016Q3

REPORT INFORMATION
  Report Type: Spontaneous
  Country: US (occurrence: US)
  Receive Date: 20160808
  Receipt Date: 20160808
  Transmission Date: 20161109
  Serious: No
  Sender: FDA-Public Use
  Company Number: US-BEH-2016071807

PATIENT
  Sex: Female
  Weight: 28.57 kg

DRUGS (35)
  1. FLUCONAZOLE. [Concomitant]
     Active Substance: FLUCONAZOLE
  2. FLONASE [Concomitant]
     Active Substance: FLUTICASONE PROPIONATE
  3. PEPCID                             /00305201/ [Concomitant]
     Active Substance: ALUMINUM HYDROXIDE\MAGNESIUM CARBONATE
  4. SIMETHICONE (DIMETHICONE) [Concomitant]
     Active Substance: DIMETHICONE
  5. OXYGEN. [Concomitant]
     Active Substance: OXYGEN
  6. FLUTICASONE [Concomitant]
     Active Substance: FLUTICASONE\FLUTICASONE PROPIONATE
  7. VITAMIN C [Concomitant]
     Active Substance: ASCORBIC ACID
  8. CARAFATE [Concomitant]
     Active Substance: SUCRALFATE
  9. PULMICORT TURBUHALER [Concomitant]
     Active Substance: BUDESONIDE
  10. DIPHENHYDRAMINE. [Concomitant]
     Active Substance: DIPHENHYDRAMINE
  11. ZYRTEC [Concomitant]
     Active Substance: CETIRIZINE HYDROCHLORIDE
  12. POLY-VI-SOL                        /00200301/ [Concomitant]
  13. SODIUM CHLORIDE. [Concomitant]
     Active Substance: SODIUM CHLORIDE
  14. ALBUTEROL SULFATE. [Concomitant]
     Active Substance: ALBUTEROL SULFATE
  15. DIASTAT ACUDIAL [Concomitant]
     Active Substance: DIAZEPAM
  16. VITAMIN D3 [Concomitant]
     Active Substance: CHOLECALCIFEROL
  17. TOBRAMYCIN. [Concomitant]
     Active Substance: TOBRAMYCIN
  18. HIZENTRA [Suspect]
     Active Substance: HUMAN IMMUNOGLOBULIN G
     Indication: RETT SYNDROME
     Dosage: UNK
     Route: 065
     Dates: start: 20160307
  19. EPIPEN JR [Concomitant]
     Active Substance: EPINEPHRINE
  20. LMX                                /00033401/ [Concomitant]
  21. VITAMIN C [Concomitant]
     Active Substance: ASCORBIC ACID
  22. LAMOTRIGINE. [Concomitant]
     Active Substance: LAMOTRIGINE
  23. LORATADINE. [Concomitant]
     Active Substance: LORATADINE
  24. GABAPENTIN. [Concomitant]
     Active Substance: GABAPENTIN
  25. MILK OF MAGNESIA [Concomitant]
     Active Substance: MAGNESIUM HYDROXIDE
  26. L-CARNITINE                        /00878601/ [Concomitant]
     Active Substance: LEVOCARNITINE
  27. HIZENTRA [Suspect]
     Active Substance: HUMAN IMMUNOGLOBULIN G
     Indication: ADJUSTMENT DISORDER
  28. DIAZEPAM. [Concomitant]
     Active Substance: DIAZEPAM
  29. ACETAMINOPHEN. [Concomitant]
     Active Substance: ACETAMINOPHEN
  30. IBUPROFEN. [Concomitant]
     Active Substance: IBUPROFEN
  31. ROBITUSSIN PEDIATRIC COUGH + COLD CF [Concomitant]
  32. PREVACID [Concomitant]
     Active Substance: LANSOPRAZOLE
  33. BACLOFEN. [Concomitant]
     Active Substance: BACLOFEN
  34. MCT [Concomitant]
  35. LAMICTAL [Concomitant]
     Active Substance: LAMOTRIGINE

REACTIONS (2)
  - Rash [Unknown]
  - Heart rate increased [Unknown]
